FAERS Safety Report 11632764 (Version 1)
Quarter: 2015Q4

REPORT INFORMATION
  Report Type: Spontaneous
  Country: US (occurrence: US)
  Receive Date: 20151015
  Receipt Date: 20151015
  Transmission Date: 20160304
  Serious: No
  Sender: FDA-Public Use
  Company Number: US-BAYER-2015-444283

PATIENT
  Age: 88 Year
  Sex: Female
  Weight: 50.79 kg

DRUGS (1)
  1. ALEVE [Suspect]
     Active Substance: NAPROXEN SODIUM
     Indication: HEADACHE
     Dosage: 2 DF, EVERY 12 HOURS
     Route: 048
     Dates: start: 20151009

REACTIONS (2)
  - Drug ineffective [Unknown]
  - Product use issue [None]

NARRATIVE: CASE EVENT DATE: 20151009
